FAERS Safety Report 24058067 (Version 4)
Quarter: 2024Q3

REPORT INFORMATION
  Report Type: Report from Study
  Country: AT (occurrence: AT)
  Receive Date: 20240707
  Receipt Date: 20240725
  Transmission Date: 20241017
  Serious: Yes (Hospitalization, Other)
  Sender: ABBVIE
  Company Number: AT-ABBVIE-22K-009-4328414-00

PATIENT
  Age: 25 Year
  Sex: Male
  Weight: 65 kg

DRUGS (24)
  1. HUMIRA [Suspect]
     Active Substance: ADALIMUMAB
     Indication: Dermatitis atopic
     Dosage: UNKNOWN
     Route: 058
     Dates: start: 2018, end: 2018
  2. HUMIRA [Suspect]
     Active Substance: ADALIMUMAB
     Indication: Crohn^s disease
     Dosage: UNKNOWN
     Route: 058
     Dates: end: 2018
  3. HUMIRA [Suspect]
     Active Substance: ADALIMUMAB
     Route: 058
  4. HUMIRA [Suspect]
     Active Substance: ADALIMUMAB
     Route: 058
     Dates: start: 20210610, end: 20220407
  5. RINVOQ [Suspect]
     Active Substance: UPADACITINIB
     Indication: Crohn^s disease
     Dosage: FREQUENCY TEXT: 0-1-0, LAST ADMIN DATE: 2021
     Route: 048
     Dates: start: 202309
  6. RINVOQ [Suspect]
     Active Substance: UPADACITINIB
     Indication: Crohn^s disease
     Dosage: FIRST ADMIN DATE: 2023
     Route: 048
     Dates: end: 202308
  7. RINVOQ [Suspect]
     Active Substance: UPADACITINIB
     Indication: Crohn^s disease
     Route: 048
     Dates: start: 202205, end: 202307
  8. RINVOQ [Suspect]
     Active Substance: UPADACITINIB
     Indication: Crohn^s disease
     Route: 048
     Dates: start: 202312
  9. CLOBETASOL [Concomitant]
     Active Substance: CLOBETASOL
     Indication: Dermatitis atopic
  10. CHOLECALCIFEROL [Concomitant]
     Active Substance: CHOLECALCIFEROL
     Indication: Product used for unknown indication
     Dosage: FREQUENCY TEXT: 15-0-0-0
     Route: 048
     Dates: start: 202105
  11. CHOLECALCIFEROL [Concomitant]
     Active Substance: CHOLECALCIFEROL
     Indication: Product used for unknown indication
     Dosage: START DATE TEXT: AFTER 8 WKS OF 15-0-0-0 DAILY?FREQUENCY TEXT: 30 DROPS 1-0-0
     Route: 048
  12. CHOLECALCIFEROL [Concomitant]
     Active Substance: CHOLECALCIFEROL
     Indication: Product used for unknown indication
     Dosage: FREQUENCY TEXT: 30 GGT WEEKLY
     Dates: start: 202205
  13. DIFLUCORTOLONE VALERATE [Concomitant]
     Active Substance: DIFLUCORTOLONE VALERATE
     Indication: Dermatitis atopic
  14. MYCOSTATIN [Concomitant]
     Active Substance: NYSTATIN
     Indication: Product used for unknown indication
     Dosage: FREQUENCY TEXT: 1-1-1-1
     Route: 048
     Dates: start: 202105
  15. ASCORBIC ACID\CALCIUM PHOSPHATE\CHOLECALCIFEROL\CITRIC ACID MONOHYDRAT [Concomitant]
     Active Substance: ASCORBIC ACID\CALCIUM PHOSPHATE\CHOLECALCIFEROL\CITRIC ACID MONOHYDRATE
     Indication: Product used for unknown indication
     Dosage: 500MG/800IU?FREQUENCY TEXT: 1-0-0-0, LAST ADMIN DATE: 2021
     Route: 048
     Dates: start: 202105
  16. ASCORBIC ACID\CALCIUM PHOSPHATE\CHOLECALCIFEROL\CITRIC ACID MONOHYDRAT [Concomitant]
     Active Substance: ASCORBIC ACID\CALCIUM PHOSPHATE\CHOLECALCIFEROL\CITRIC ACID MONOHYDRATE
     Indication: Product used for unknown indication
     Dosage: 500MG/800IU?FREQUENCY TEXT: 1-0-0
     Dates: start: 202106
  17. GEROFOL [Concomitant]
     Indication: Product used for unknown indication
     Dosage: FREQUENCY TEXT: 1-0-0-0, LAST ADMIN DATE: 2021
     Route: 048
     Dates: start: 202105
  18. GEROFOL [Concomitant]
     Indication: Product used for unknown indication
     Dosage: FREQUENCY TEXT: 1-0-0
     Dates: start: 202106
  19. PANTOPRAZOLE SODIUM [Concomitant]
     Active Substance: PANTOPRAZOLE SODIUM
     Indication: Product used for unknown indication
     Dosage: PANTOPRAZOL BLU ENTERIC-COATED?FREQUENCY TEXT: 1-0-1-0, LAST ADMIN DATE: 2021
     Route: 048
     Dates: start: 202105
  20. PANTOPRAZOLE SODIUM [Concomitant]
     Active Substance: PANTOPRAZOLE SODIUM
     Indication: Product used for unknown indication
     Dosage: FREQUENCY TEXT: 1-0-1, ON DEMAND
     Dates: start: 202106
  21. PREDNISOLONE [Concomitant]
     Active Substance: PREDNISOLONE
     Indication: Product used for unknown indication
     Dosage: FREQUENCY TEXT: 1-0-0, PREDNISOLONE NYC
     Dates: start: 202106
  22. PREDNISOLONE [Concomitant]
     Active Substance: PREDNISOLONE
     Indication: Product used for unknown indication
     Dosage: FREQUENCY TEXT: 1-0-0-0, LAST ADMIN DATE: 2021, PREDNISOLONE NYC
     Route: 048
     Dates: start: 202105
  23. PREDNISOLONE [Concomitant]
     Active Substance: PREDNISOLONE
     Indication: Product used for unknown indication
     Dosage: FREQUENCY TEXT: 1-0-0-0, LAST ADMIN DATE: 2021, PREDNISOLONE NYC
     Route: 048
     Dates: start: 202105
  24. ABROCITINIB [Concomitant]
     Active Substance: ABROCITINIB
     Indication: Product used for unknown indication
     Dates: start: 202308, end: 20230920

REACTIONS (45)
  - Upper gastrointestinal haemorrhage [Unknown]
  - Alopecia totalis [Not Recovered/Not Resolved]
  - Proctalgia [Unknown]
  - Vomiting [Unknown]
  - Dermatitis atopic [Not Recovered/Not Resolved]
  - Flatulence [Unknown]
  - Ulcer [Unknown]
  - Fistula [Unknown]
  - Diarrhoea [Unknown]
  - Faecal calprotectin increased [Unknown]
  - Anal fistula [Unknown]
  - Rash [Unknown]
  - Colitis ulcerative [Unknown]
  - Decreased appetite [Unknown]
  - Weight decreased [Unknown]
  - Abdominal lymphadenopathy [Unknown]
  - Abdominal pain upper [Unknown]
  - Gastrooesophageal reflux disease [Unknown]
  - Nausea [Unknown]
  - Alopecia areata [Unknown]
  - Ileal stenosis [Unknown]
  - Gastritis [Unknown]
  - Connective tissue disorder [Unknown]
  - Weight decreased [Unknown]
  - Mucosal disorder [Unknown]
  - Anal fistula [Unknown]
  - Alopecia [Unknown]
  - C-reactive protein increased [Unknown]
  - Alopecia areata [Unknown]
  - Anorectal swelling [Unknown]
  - Skin disorder [Unknown]
  - Pruritus [Unknown]
  - Fistula [Unknown]
  - Fistula [Unknown]
  - Rash [Unknown]
  - Ileal ulcer [Unknown]
  - Gastrointestinal disorder [Not Recovered/Not Resolved]
  - Abdominal pain [Unknown]
  - Skin disorder [Unknown]
  - Colitis [Unknown]
  - Skin lesion [Unknown]
  - Stenosis [Unknown]
  - Rash pruritic [Unknown]
  - Large intestinal ulcer [Unknown]
  - Inflammation [Unknown]

NARRATIVE: CASE EVENT DATE: 20211001
